FAERS Safety Report 5788903-7 (Version None)
Quarter: 2008Q2

REPORT INFORMATION
  Report Type: 
  Country: None (occurrence: None)
  Receive Date: 20080626
  Receipt Date: 20071211
  Transmission Date: 20081010
  Serious: No
  Sender: FDA-Public Use
  Company Number: US-ASTRAZENECA-2007UW28260

PATIENT
  Age: 65 Year
  Sex: Female
  Weight: 113.4 kg

DRUGS (15)
  1. PULMICORT FLEXHALER [Suspect]
     Indication: ASTHMA
     Dosage: 2 PUFFS BID
     Route: 055
     Dates: start: 20070801
  2. PREVACID [Concomitant]
  3. HYDROCHLOROTHIAZIDE [Concomitant]
  4. LASIX [Concomitant]
  5. VALIUM [Concomitant]
  6. ALLEGRA [Concomitant]
  7. POTASSIUM CHLORIDE [Concomitant]
  8. MAGNESIUM [Concomitant]
  9. ASCORBIC ACID [Concomitant]
  10. ACIDOPHILUS [Concomitant]
  11. LECITHIN [Concomitant]
  12. OSCAL PLUS D [Concomitant]
  13. VITAMIN A [Concomitant]
  14. MILK THISTLE [Concomitant]
  15. KELP [Concomitant]

REACTIONS (6)
  - COUGH [None]
  - DIARRHOEA [None]
  - ERUCTATION [None]
  - FLATULENCE [None]
  - NECK PAIN [None]
  - VOMITING [None]
